FAERS Safety Report 6388637-4 (Version None)
Quarter: 2009Q4

REPORT INFORMATION
  Report Type: 
  Country: None (occurrence: None)
  Receive Date: 20091005
  Receipt Date: 20090925
  Transmission Date: 20100525
  Serious: Yes (Death, Other)
  Sender: FDA-Public Use
  Company Number: US-PURDUE-USA-2009-0039099

PATIENT
  Sex: Male

DRUGS (2)
  1. OXYCONTIN [Suspect]
     Indication: ANALGESIC THERAPY
     Dosage: 140 MG, DAILY
     Route: 048
     Dates: start: 20000926, end: 20030506
  2. OXYCONTIN [Suspect]
     Dosage: UNK MG, DAILY
     Route: 048

REACTIONS (3)
  - DEATH [None]
  - HALLUCINATION [None]
  - MEMORY IMPAIRMENT [None]
